FAERS Safety Report 8130690-1 (Version None)
Quarter: 2012Q1

REPORT INFORMATION
  Report Type: 
  Country: None (occurrence: None)
  Receive Date: 20120213
  Receipt Date: 20120201
  Transmission Date: 20120608
  Serious: No
  Sender: FDA-Public Use
  Company Number: US-BIOGENIDEC-2012BI004147

PATIENT
  Sex: Female

DRUGS (5)
  1. AVONEX [Concomitant]
     Indication: MULTIPLE SCLEROSIS
     Route: 030
  2. TYSABRI [Suspect]
     Indication: MULTIPLE SCLEROSIS
     Route: 042
     Dates: start: 20071113, end: 20080730
  3. AVONEX [Concomitant]
     Route: 030
     Dates: start: 20010105
  4. TYSABRI [Suspect]
     Route: 042
     Dates: start: 20111222
  5. AVONEX [Concomitant]
     Route: 030
     Dates: start: 20090401

REACTIONS (5)
  - FATIGUE [None]
  - ASTHENIA [None]
  - MENTAL IMPAIRMENT [None]
  - INSOMNIA [None]
  - DYSGRAPHIA [None]
